FAERS Safety Report 12362369 (Version 2)
Quarter: 2019Q4

REPORT INFORMATION
  Report Type: Spontaneous
  Country: US (occurrence: US)
  Receive Date: 20160512
  Receipt Date: 20191213
  Transmission Date: 20200122
  Serious: No
  Sender: FDA-Public Use
  Company Number: US-UCBSA-2015038474

PATIENT
  Age: 22 Year
  Sex: Male

DRUGS (2)
  1. CIMZIA [Suspect]
     Active Substance: CERTOLIZUMAB PEGOL
     Indication: OFF LABEL USE
  2. CIMZIA [Suspect]
     Active Substance: CERTOLIZUMAB PEGOL
     Indication: PROCTITIS ULCERATIVE
     Dosage: 400 MG, EV 4 WEEKS
     Route: 058

REACTIONS (3)
  - Injection site pruritus [Unknown]
  - Off label use [Unknown]
  - Pruritus [Unknown]
